FAERS Safety Report 8295418-3 (Version None)
Quarter: 2012Q2

REPORT INFORMATION
  Report Type: 
  Country: None (occurrence: None)
  Receive Date: 20120418
  Receipt Date: 20120209
  Transmission Date: 20120825
  Serious: No
  Sender: FDA-Public Use
  Company Number: US-ASTRAZENECA-2011SE74065

PATIENT
  Age: 80 Year
  Sex: Male

DRUGS (9)
  1. DEXILANT [Concomitant]
  2. VITAMIN B-12 [Concomitant]
     Dosage: 1000 U
     Route: 058
  3. ASPIRIN [Concomitant]
  4. VITAMIN D [Concomitant]
     Dosage: 1000 IU
  5. NEXIUM [Suspect]
     Route: 048
  6. FOLIC ACID [Concomitant]
  7. LASIX [Concomitant]
  8. TOPROL-XL [Suspect]
     Route: 048
  9. LISINOPRIL [Suspect]
     Route: 048

REACTIONS (4)
  - HYPERTENSION [None]
  - HYPONATRAEMIA [None]
  - AGITATION [None]
  - DRUG HYPERSENSITIVITY [None]
